FAERS Safety Report 4693014-8 (Version None)
Quarter: 2005Q2

REPORT INFORMATION
  Report Type: 
  Country: None (occurrence: None)
  Receive Date: 20050615
  Receipt Date: 20050610
  Transmission Date: 20051028
  Serious: Yes (Hospitalization, Other)
  Sender: FDA-Public Use
  Company Number: USA-2005-0020563

PATIENT
  Age: 59 Year
  Sex: Female

DRUGS (2)
  1. MS CONTIN [Suspect]
     Indication: PAIN
     Dosage: 60 MG ORAL
     Route: 048
  2. PERCOCET [Concomitant]

REACTIONS (17)
  - AGITATION [None]
  - ARTHRALGIA [None]
  - BACK PAIN [None]
  - BLOOD PRESSURE SYSTOLIC INCREASED [None]
  - BLOOD THYROID STIMULATING HORMONE DECREASED [None]
  - CRYING [None]
  - DEPRESSED LEVEL OF CONSCIOUSNESS [None]
  - HYPOTHYROIDISM [None]
  - HYPOVENTILATION [None]
  - LETHARGY [None]
  - RESPIRATORY DEPRESSION [None]
  - RESPIRATORY RATE DECREASED [None]
  - SCREAMING [None]
  - SYNCOPE [None]
  - THYROXINE DECREASED [None]
  - TREATMENT NONCOMPLIANCE [None]
  - TRI-IODOTHYRONINE DECREASED [None]
